FAERS Safety Report 18632951 (Version 1)
Quarter: 2020Q4

REPORT INFORMATION
  Report Type: Spontaneous
  Country: CH (occurrence: CH)
  Receive Date: 20201218
  Receipt Date: 20201218
  Transmission Date: 20210114
  Serious: Yes (Hospitalization, Other)
  Sender: FDA-Public Use
  Company Number: CH-TEVA-2020-CH-1859931

PATIENT
  Age: 77 Year
  Sex: Female

DRUGS (1)
  1. ALENDRONIC ACID [Suspect]
     Active Substance: ALENDRONIC ACID
     Indication: OSTEOPOROSIS POSTMENOPAUSAL
     Dates: start: 201604, end: 20191102

REACTIONS (2)
  - Joint noise [Unknown]
  - Fracture [Unknown]

NARRATIVE: CASE EVENT DATE: 2019
